FAERS Safety Report 8773275 (Version 4)
Quarter: 2012Q4

REPORT INFORMATION
  Report Type: 
  Country: GB (occurrence: GB)
  Receive Date: 20120907
  Receipt Date: 20121106
  Transmission Date: 20130627
  Serious: Yes (Other)
  Sender: FDA-Public Use
  Company Number: GB-VERTEX PHARMACEUTICAL INC.-2012-020807

PATIENT
  Age: 45 Year
  Sex: Male

DRUGS (5)
  1. VX-950 [Suspect]
     Indication: HEPATITIS C
     Dosage: 750 mg, tid
     Route: 048
     Dates: start: 20120606
  2. RIBAVIRIN [Suspect]
     Indication: HEPATITIS C
     Dosage: Dosage Form: Unspecified
     Route: 048
     Dates: start: 20120606
  3. PEG INTERFERON [Suspect]
     Indication: HEPATITIS C
     Dosage: Dosage Form: Unspecified
     Route: 058
     Dates: start: 20120606
  4. ZOPIDORM [Concomitant]
     Dosage: Dosage Form: Unspecified
     Route: 065
  5. TEMAZEPAM [Concomitant]
     Dosage: Dosage Form: Unspecified
     Route: 065

REACTIONS (6)
  - Neuropathy peripheral [Recovered/Resolved]
  - Insomnia [Recovered/Resolved]
  - Coordination abnormal [Recovered/Resolved]
  - Mental impairment [Recovered/Resolved]
  - Rash [Recovered/Resolved]
  - Axillary mass [Recovered/Resolved]
